FAERS Safety Report 11752725 (Version 1)
Quarter: 2015Q4

REPORT INFORMATION
  Report Type: Report from Study
  Country: US (occurrence: US)
  Receive Date: 20151119
  Receipt Date: 20151119
  Transmission Date: 20160304
  Serious: No
  Sender: FDA-Public Use
  Company Number: US-AMGEN-USASL2015122010

PATIENT
  Age: 53 Year
  Sex: Male

DRUGS (1)
  1. ENBREL [Suspect]
     Active Substance: ETANERCEPT
     Indication: RHEUMATOID ARTHRITIS
     Dosage: 50 MG, QWK
     Route: 065
     Dates: start: 20150228

REACTIONS (8)
  - Blood calcium increased [Unknown]
  - Mood swings [Unknown]
  - Amnesia [Unknown]
  - Skin swelling [Unknown]
  - Confusional state [Unknown]
  - Pruritus [Unknown]
  - Erythema [Unknown]
  - Arthropod bite [Unknown]

NARRATIVE: CASE EVENT DATE: 2015
